FAERS Safety Report 10502411 (Version 7)
Quarter: 2015Q3

REPORT INFORMATION
  Report Type: Report from Study
  Country: AU (occurrence: AU)
  Receive Date: 20141007
  Receipt Date: 20150922
  Transmission Date: 20151125
  Serious: Yes (Other)
  Sender: FDA-Public Use
  Company Number: AU-INCYTE CORPORATION-2014IN002818

PATIENT
  Age: 67 Year
  Sex: Female

DRUGS (4)
  1. JAKAFI [Suspect]
     Active Substance: RUXOLITINIB
     Dosage: 10 MG, BID
     Route: 065
  2. JAKAFI [Suspect]
     Active Substance: RUXOLITINIB
     Dosage: 10 MG, BID
     Route: 065
     Dates: start: 20141016
  3. JAKAFI [Suspect]
     Active Substance: RUXOLITINIB
     Indication: MYELOFIBROSIS
     Dosage: 15 MG, BID
     Route: 065
  4. JAKAFI [Suspect]
     Active Substance: RUXOLITINIB
     Dosage: 10 MG MORNING AND 5 MG NIGHT
     Route: 065
     Dates: start: 20150304

REACTIONS (6)
  - Pancytopenia [Recovering/Resolving]
  - Anisocytosis [Unknown]
  - Nucleated red cells [Unknown]
  - Cytopenia [Unknown]
  - Polychromasia [Unknown]
  - Poikilocytosis [Unknown]

NARRATIVE: CASE EVENT DATE: 20140820
